FAERS Safety Report 23163429 (Version 1)
Quarter: 2023Q4

REPORT INFORMATION
  Report Type: Spontaneous
  Country: DE (occurrence: DE)
  Receive Date: 20231109
  Receipt Date: 20231109
  Transmission Date: 20240110
  Serious: Yes (Other)
  Sender: FDA-Public Use
  Company Number: DE-SA-2018SA300255

PATIENT
  Age: 68 Year
  Sex: Male

DRUGS (22)
  1. GABAPENTIN [Suspect]
     Active Substance: GABAPENTIN
     Indication: Post herpetic neuralgia
     Dosage: 600 MG, 3X/DAY 3 X 600 MG (WEEK 0-WEEK11) REGIMEN DOSE UNIT: MILLIGRAM
     Route: 065
  2. GABAPENTIN [Suspect]
     Active Substance: GABAPENTIN
     Dosage: 600-300-300 MG (WEEK 17)
     Route: 065
  3. GABAPENTIN [Suspect]
     Active Substance: GABAPENTIN
     Dosage: 300-300-300 MG  (AFTER 8 MONTHS)
     Route: 065
  4. GABAPENTIN [Suspect]
     Active Substance: GABAPENTIN
     Dosage: 2400 MG, DAILY (2400 MG/D)
     Route: 065
  5. AMITRIPTYLINE [Suspect]
     Active Substance: AMITRIPTYLINE
     Indication: Product used for unknown indication
     Dosage: 25 MG, UNK (WEEK 0)
     Route: 065
  6. AMITRIPTYLINE [Suspect]
     Active Substance: AMITRIPTYLINE
     Dosage: 10 GTT, UNK (WEEK 8)
     Route: 065
  7. AMITRIPTYLINE [Suspect]
     Active Substance: AMITRIPTYLINE
     Dosage: 25 MG, 1X/DAY  (AT NIGHT) REGIMEN DOSE UNIT: MILLIGRAM
     Route: 065
  8. PREGABALIN [Suspect]
     Active Substance: PREGABALIN
     Indication: Post herpetic neuralgia
     Dosage: UNK
     Route: 065
  9. TAPENTADOL [Suspect]
     Active Substance: TAPENTADOL
     Indication: Post herpetic neuralgia
     Dosage: 150-150-200 MG (WEEK 8-WEEK 17)
     Route: 065
  10. TAPENTADOL [Suspect]
     Active Substance: TAPENTADOL
     Indication: Trigeminal neuralgia
     Dosage: 100-100-200 MG (AFTER 8 MONTHS)
     Route: 065
  11. OXCARBAZEPINE [Suspect]
     Active Substance: OXCARBAZEPINE
     Indication: Product used for unknown indication
     Dosage: 4 X 150 MG (WEEK 8)
     Route: 065
  12. OXCARBAZEPINE [Suspect]
     Active Substance: OXCARBAZEPINE
     Dosage: 2 X 150 MG  (WEEK 11)
     Route: 065
  13. LIDOCAINE HYDROCHLORIDE [Suspect]
     Active Substance: DEXTROSE MONOHYDRATE\EPINEPHRINE\EPINEPHRINE BITARTRATE\LIDOCAINE\LIDOCAINE HYDROCHLORIDE\LIDOCAINE
     Indication: Post herpetic neuralgia
     Dosage: AT NIGHT TIME (WEEK 8-WEEK 17)
     Route: 061
  14. LIDOCAINE HYDROCHLORIDE [Suspect]
     Active Substance: DEXTROSE MONOHYDRATE\EPINEPHRINE\EPINEPHRINE BITARTRATE\LIDOCAINE\LIDOCAINE HYDROCHLORIDE\LIDOCAINE
     Dosage: AT NIGHT TIME AS NEEDED (AFTER 8 MONTHS)
     Route: 061
  15. AMBROXOL [Suspect]
     Active Substance: AMBROXOL
     Indication: Post herpetic neuralgia
     Dosage: UNK (WEEK 8)
     Route: 061
  16. AMBROXOL [Suspect]
     Active Substance: AMBROXOL
     Dosage: UNK (WEEK 11)
     Route: 061
  17. AMBROXOL [Suspect]
     Active Substance: AMBROXOL
     Dosage: UNK (WEEK 17)
     Route: 061
  18. AMBROXOL [Suspect]
     Active Substance: AMBROXOL
     Dosage: UNK (AFTER 8 MONTHS)
     Route: 061
  19. HYDROMORPHONE [Suspect]
     Active Substance: HYDROMORPHONE
     Indication: Post herpetic neuralgia
     Dosage: 4 MG, 2X/DAY 4-0-4 MG (WEEK 0) DOSE UNIT: MG
     Route: 065
  20. ACYCLOVIR [Suspect]
     Active Substance: ACYCLOVIR
     Indication: Herpes zoster
     Dosage: UNK
     Route: 065
  21. DEXAMETHASONE [Suspect]
     Active Substance: DEXAMETHASONE
     Indication: Post herpetic neuralgia
     Dosage: UNK
     Route: 065
  22. CAPSAICIN [Suspect]
     Active Substance: CAPSAICIN
     Indication: Post herpetic neuralgia
     Dosage: UNK
     Route: 065

REACTIONS (23)
  - Glaucoma [Unknown]
  - Atrial fibrillation [Unknown]
  - Drug ineffective [Unknown]
  - Intentional product use issue [Unknown]
  - Fall [Unknown]
  - Confusional state [Unknown]
  - Osteoarthritis [Unknown]
  - Sleep apnoea syndrome [Recovered/Resolved]
  - Liver function test increased [Unknown]
  - Benign prostatic hyperplasia [Unknown]
  - Quality of life decreased [Unknown]
  - Application site erythema [Unknown]
  - Constipation [Unknown]
  - Fatigue [Unknown]
  - Nasopharyngitis [Unknown]
  - Hypoaesthesia [Unknown]
  - Drug eruption [Unknown]
  - Sleep deficit [Recovered/Resolved]
  - Depression [Unknown]
  - Blood creatinine increased [Unknown]
  - Application site pain [Unknown]
  - Insomnia [Unknown]
  - Hyperaesthesia [Unknown]
